FAERS Safety Report 17922533 (Version 2)
Quarter: 2020Q2

REPORT INFORMATION
  Report Type: Spontaneous
  Country: US (occurrence: US)
  Receive Date: 20200622
  Receipt Date: 20200623
  Transmission Date: 20200714
  Serious: No
  Sender: FDA-Public Use
  Company Number: US-PFIZER INC-2020239500

PATIENT
  Age: 75 Year
  Sex: Female
  Weight: 66.22 kg

DRUGS (1)
  1. IBRANCE [Suspect]
     Active Substance: PALBOCICLIB
     Indication: BREAST CANCER METASTATIC
     Dosage: 75 MG, CYCLIC, ONCE A DAY FOR 3 WEEKS, THEN OFF 2 WEEKS

REACTIONS (1)
  - White blood cell count decreased [Unknown]
